FAERS Safety Report 10280547 (Version 1)
Quarter: 2014Q3

REPORT INFORMATION
  Report Type: Spontaneous
  Country: US (occurrence: None)
  Receive Date: 20140702
  Receipt Date: 20140702
  Transmission Date: 20150326
  Serious: Yes (Life-Threatening, Other)
  Sender: FDA-Public Use
  Company Number: 2014JUB00007

PATIENT
  Age: 17 Year
  Sex: Male

DRUGS (4)
  1. IMIPRAMINE (IMIPRAMINE) (IMIPRAMINE) [Suspect]
     Active Substance: IMIPRAMINE
     Route: 048
  2. GUANIFACINE [Suspect]
     Active Substance: GUANFACINE
     Route: 048
  3. OLANZAPINE. [Suspect]
     Active Substance: OLANZAPINE
     Route: 048
  4. VALPROIC ACID (VALPROIC ACID) [Suspect]
     Active Substance: VALPROIC ACID
     Route: 048

REACTIONS (6)
  - Hyperammonaemia [None]
  - Intentional overdose [None]
  - Pneumonia [None]
  - Brain oedema [None]
  - Intracranial pressure increased [None]
  - Hypertension [None]
